FAERS Safety Report 7179834-9 (Version None)
Quarter: 2010Q4

REPORT INFORMATION
  Report Type: 
  Country: None (occurrence: None)
  Receive Date: 20101221
  Receipt Date: 20100730
  Transmission Date: 20110411
  Serious: Yes (Death, Hospitalization)
  Sender: FDA-Public Use
  Company Number: US-BRISTOL-MYERS SQUIBB COMPANY-15212194

PATIENT
  Age: 64 Year
  Sex: Male

DRUGS (1)
  1. TRIAMCINOLONE ACETONIDE [Suspect]
     Indication: NECK PAIN
     Dosage: 1DF=2ML OF A 40 MG/ML SUSPENSION; C1 C2 INTRAARTICULAR FACET INJECTION.
     Route: 014

REACTIONS (1)
  - CEREBROVASCULAR ACCIDENT [None]
